FAERS Safety Report 5065826-2 (Version None)
Quarter: 2006Q3

REPORT INFORMATION
  Report Type: 
  Country: None (occurrence: None)
  Receive Date: 20060725
  Receipt Date: 20060719
  Transmission Date: 20061208
  Serious: Yes (Death)
  Sender: FDA-Public Use
  Company Number: 2006-145623-NL

PATIENT
  Age: 83 Year
  Sex: Female

DRUGS (4)
  1. DANAPAROID SODIUM [Suspect]
     Indication: HEPARIN-INDUCED THROMBOCYTOPENIA
     Dosage: 150 IU Q1HR
     Route: 042
     Dates: start: 20060707, end: 20060710
  2. ACETAMINOPHEN [Concomitant]
  3. PANTOPRAZOLE SODIUM [Concomitant]
  4. FUROSEMIDE [Concomitant]

REACTIONS (4)
  - GASTROINTESTINAL NECROSIS [None]
  - HEPATIC FAILURE [None]
  - SEPSIS [None]
  - SMALL INTESTINE GANGRENE [None]
